FAERS Safety Report 23624565 (Version 1)
Quarter: 2024Q1

REPORT INFORMATION
  Report Type: Report from Study
  Country: NL (occurrence: NL)
  Receive Date: 20240313
  Receipt Date: 20240313
  Transmission Date: 20240410
  Serious: Yes (Other)
  Sender: FDA-Public Use
  Company Number: NL-ABBVIE-5673062

PATIENT
  Sex: Female

DRUGS (15)
  1. CARBIDOPA\LEVODOPA [Suspect]
     Active Substance: CARBIDOPA\LEVODOPA
     Indication: Parkinson^s disease
     Dosage: MD: 17.0ML CD: 5.3ML/H ED: 3.50ML?DURATION TEXT: REMAINS AT 16 HOURS
     Route: 050
     Dates: start: 20230712, end: 20231116
  2. CARBIDOPA\LEVODOPA [Suspect]
     Active Substance: CARBIDOPA\LEVODOPA
     Dosage: MD: 17.0ML CD: 5.3ML/H ED: 3.50ML?DURATION TEXT: REMAINS AT 16 HOURS
     Route: 050
     Dates: start: 20231116
  3. CARBIDOPA\LEVODOPA [Suspect]
     Active Substance: CARBIDOPA\LEVODOPA
     Dosage: MD: 17.0ML CD: 5.3ML/H ED: 3.50ML?DURATION TEXT: REMAINS AT 16 HOURS
     Route: 050
     Dates: start: 20230627, end: 20230712
  4. CARBIDOPA\LEVODOPA [Suspect]
     Active Substance: CARBIDOPA\LEVODOPA
     Dosage: LAST ADMIN DATE 2023
     Route: 050
     Dates: start: 20230510
  5. DICLOFENAC [Concomitant]
     Active Substance: DICLOFENAC
     Indication: Arthralgia
     Dosage: TIME INTERVAL: 0.33333333 DAYS
  6. NEUPRO [Concomitant]
     Active Substance: ROTIGOTINE
     Indication: Product used for unknown indication
     Dosage: FREQUENCY TEXT: 2 - 0 - 0 - 0 - 0 PIECE?DURATION TEXT: 24-HOUR
  7. OMEPRAZOLE [Concomitant]
     Active Substance: OMEPRAZOLE
     Indication: Product used for unknown indication
     Dosage: FREQUENCY TEXT: 1 - 0 - 1 - 0 PIECES
  8. FLUTICASONE PROPIONATE [Concomitant]
     Active Substance: FLUTICASONE PROPIONATE
     Indication: Product used for unknown indication
     Dosage: 50 MICROGRAM PER DOSE?FREQUENCY TEXT: 150DOX -0 -0 -0 DOSES WITHOUT NEUROPATCH
  9. POLYETHYLENE GLYCOLS [Concomitant]
     Active Substance: POLYETHYLENE GLYCOLS
     Indication: Product used for unknown indication
     Dosage: SALT?FREQUENCY TEXT: 1 - 0 - 0 - 0 PIECES
  10. BENSERAZIDE HYDROCHLORIDE\LEVODOPA [Concomitant]
     Active Substance: BENSERAZIDE HYDROCHLORIDE\LEVODOPA
     Indication: Product used for unknown indication
     Dosage: FREQUENCY TEXT: UP TO 3 TIMES 1 PER DAY WHEN OFF
  11. BENSERAZIDE HYDROCHLORIDE\LEVODOPA [Concomitant]
     Active Substance: BENSERAZIDE HYDROCHLORIDE\LEVODOPA
     Indication: Product used for unknown indication
     Dosage: HYDRODYNAMICALLY BALANCED SYSTEM ?FREQUENCY TEXT: AT 10:00 PM 3 PIECES,
  12. ACETAMINOPHEN [Concomitant]
     Active Substance: ACETAMINOPHEN
     Indication: Product used for unknown indication
     Dosage: FREQUENCY TEXT: UP TO 4 TIME 2 PER DAY
  13. CHOLECALCIFEROL [Concomitant]
     Active Substance: CHOLECALCIFEROL
     Indication: Product used for unknown indication
     Dosage: FREQUENCY TEXT: 1 -0 -0 -0 PIECES ONCE A WEEK ON TUESDAY
  14. MOVICOLON [Concomitant]
     Active Substance: POLYETHYLENE GLYCOL 3350\POTASSIUM CHLORIDE\SODIUM BICARBONATE\SODIUM CHLORIDE
     Indication: Product used for unknown indication
     Dosage: FREQUENCY TEXT: 1 - 0 - 0 - 0 PIECES
  15. BENSERAZIDE HYDROCHLORIDE\LEVODOPA [Concomitant]
     Active Substance: BENSERAZIDE HYDROCHLORIDE\LEVODOPA
     Indication: Product used for unknown indication
     Dosage: FREQUENCY TEXT:  AT 6.30 AM 1 PIECE

REACTIONS (4)
  - Nerve compression [Recovered/Resolved]
  - On and off phenomenon [Recovered/Resolved]
  - Dehydration [Unknown]
  - Stoma site discharge [Not Recovered/Not Resolved]
